FAERS Safety Report 11533617 (Version 1)
Quarter: 2015Q3

REPORT INFORMATION
  Report Type: Spontaneous
  Country: FI (occurrence: FI)
  Receive Date: 20150921
  Receipt Date: 20150921
  Transmission Date: 20151125
  Serious: Yes (Hospitalization)
  Sender: FDA-Public Use
  Company Number: FI-HOSPIRA-3009065

PATIENT
  Age: 55 Year
  Sex: Male

DRUGS (2)
  1. CISPLATIN. [Suspect]
     Active Substance: CISPLATIN
     Indication: BLADDER CANCER
     Dosage: SECOND DAY
  2. GEMCITABINE HYDROCHLORIDE. [Suspect]
     Active Substance: GEMCITABINE HYDROCHLORIDE
     Indication: BLADDER CANCER
     Dosage: SECOND DAY

REACTIONS (3)
  - Extremity necrosis [Recovered/Resolved with Sequelae]
  - Cardiac failure [Recovered/Resolved]
  - Stomatitis [Recovered/Resolved]
